FAERS Safety Report 4701179-4 (Version None)
Quarter: 2005Q2

REPORT INFORMATION
  Report Type: 
  Country: None (occurrence: None)
  Receive Date: 20050628
  Receipt Date: 20050614
  Transmission Date: 20051028
  Serious: Yes (Hospitalization)
  Sender: FDA-Public Use
  Company Number: GB-JNJFOC-20050602327

PATIENT
  Sex: Male

DRUGS (2)
  1. TOPAMAX [Suspect]
     Indication: EPILEPSY
     Dosage: VARYING DOSAGES FROM WEEK TO WEEK.
     Route: 065
     Dates: start: 20040601, end: 20050519
  2. PHENYTOIN [Suspect]
     Indication: EPILEPSY

REACTIONS (6)
  - DRUG TOXICITY [None]
  - GRAND MAL CONVULSION [None]
  - HYPERVENTILATION [None]
  - PANIC ATTACK [None]
  - PSYCHOTIC DISORDER [None]
  - STATUS EPILEPTICUS [None]
